FAERS Safety Report 24722089 (Version 1)
Quarter: 2024Q4

REPORT INFORMATION
  Report Type: Spontaneous
  Country: US (occurrence: None)
  Receive Date: 20241210
  Receipt Date: 20241210
  Transmission Date: 20250114
  Serious: Yes (Hospitalization)
  Sender: Public
  Company Number: None

PATIENT
  Age: 74 Year
  Sex: Male
  Weight: 194 kg

DRUGS (2)
  1. LITHIUM CARBONATE [Suspect]
     Active Substance: LITHIUM CARBONATE
     Indication: Bipolar disorder
     Dosage: FREQUENCY : TWICE A DAY;?
     Route: 048
  2. VILAZODONE [Suspect]
     Active Substance: VILAZODONE

REACTIONS (5)
  - Toxicity to various agents [None]
  - Tremor [None]
  - Paraesthesia oral [None]
  - Ataxia [None]
  - Agitation [None]

NARRATIVE: CASE EVENT DATE: 20210518
